FAERS Safety Report 18410438 (Version 2)
Quarter: 2021Q1

REPORT INFORMATION
  Report Type: Spontaneous
  Country: US (occurrence: US)
  Receive Date: 20201021
  Receipt Date: 20210310
  Transmission Date: 20210419
  Serious: No
  Sender: FDA-Public Use
  Company Number: US-GILEAD-2020-0499304

PATIENT
  Age: 53 Year
  Sex: Male
  Weight: 95.3 kg

DRUGS (42)
  1. PREZCOBIX [Concomitant]
     Active Substance: COBICISTAT\DARUNAVIR ETHANOLATE
     Indication: HIV INFECTION
  2. TIVICAY [Concomitant]
     Active Substance: DOLUTEGRAVIR SODIUM
     Indication: HIV INFECTION
  3. CEPHALEXIN. [Concomitant]
     Active Substance: CEPHALEXIN
  4. CIALIS [Concomitant]
     Active Substance: TADALAFIL
  5. DYAZIDE [Concomitant]
     Active Substance: HYDROCHLOROTHIAZIDE\TRIAMTERENE
  6. HYDROCODONE [Concomitant]
     Active Substance: HYDROCODONE
  7. METOPROLOL. [Concomitant]
     Active Substance: METOPROLOL
  8. PANTOPRAZOLE [Concomitant]
     Active Substance: PANTOPRAZOLE
  9. TADALAFIL. [Concomitant]
     Active Substance: TADALAFIL
  10. AMITIZA [Concomitant]
     Active Substance: LUBIPROSTONE
  11. AMOX+CLAV [Concomitant]
  12. CLARITHROMYCIN. [Concomitant]
     Active Substance: CLARITHROMYCIN
  13. LINZESS [Concomitant]
     Active Substance: LINACLOTIDE
  14. MIRTAZAPINE. [Concomitant]
     Active Substance: MIRTAZAPINE
  15. TRAMADOL. [Concomitant]
     Active Substance: TRAMADOL
  16. TRULANCE [Concomitant]
     Active Substance: PLECANATIDE
  17. ASPIRIN. [Concomitant]
     Active Substance: ASPIRIN
  18. AZITHROMYCIN ANHYDROUS. [Concomitant]
     Active Substance: AZITHROMYCIN ANHYDROUS
  19. COMPLERA [Suspect]
     Active Substance: EMTRICITABINE\RILPIVIRINE HYDROCHLORIDE\TENOFOVIR DISOPROXIL FUMARATE
     Dosage: UNK
     Route: 048
     Dates: start: 201502, end: 202101
  20. AMOXICILLIN. [Concomitant]
     Active Substance: AMOXICILLIN
  21. ARIPIPRAZOLE. [Concomitant]
     Active Substance: ARIPIPRAZOLE
  22. LAMICTAL [Concomitant]
     Active Substance: LAMOTRIGINE
  23. TRIAMTERENE. [Concomitant]
     Active Substance: TRIAMTERENE
  24. AMLODIPINE [Concomitant]
     Active Substance: AMLODIPINE BESYLATE
  25. BETAMETHASONE. [Concomitant]
     Active Substance: BETAMETHASONE
  26. DEXAMETHASONE. [Concomitant]
     Active Substance: DEXAMETHASONE
  27. METRONIDAZOLE. [Concomitant]
     Active Substance: METRONIDAZOLE
  28. NORVASC [Concomitant]
     Active Substance: AMLODIPINE BESYLATE
  29. OXYCODONE [Concomitant]
     Active Substance: OXYCODONE
  30. POTASIUM [Concomitant]
  31. KRISTALOSE [Concomitant]
     Active Substance: LACTULOSE
  32. LAMOTRIGINE. [Concomitant]
     Active Substance: LAMOTRIGINE
  33. TAMSULOSIN [Concomitant]
     Active Substance: TAMSULOSIN
  34. COMPLERA [Suspect]
     Active Substance: EMTRICITABINE\RILPIVIRINE HYDROCHLORIDE\TENOFOVIR DISOPROXIL FUMARATE
     Indication: HIV INFECTION
     Dosage: UNK
     Route: 048
     Dates: start: 2012
  35. ABILIFY [Concomitant]
     Active Substance: ARIPIPRAZOLE
  36. CLOTRIMAZOLE. [Concomitant]
     Active Substance: CLOTRIMAZOLE
  37. METHYLPREDNISOLONE. [Concomitant]
     Active Substance: METHYLPREDNISOLONE
  38. ONDANSETRON [Concomitant]
     Active Substance: ONDANSETRON
  39. REMERON [Concomitant]
     Active Substance: MIRTAZAPINE
  40. SUPREP BOWEL [Concomitant]
  41. CIPROFLOXACIN. [Concomitant]
     Active Substance: CIPROFLOXACIN
  42. COLACE [Concomitant]
     Active Substance: DOCUSATE SODIUM

REACTIONS (5)
  - Pain [Unknown]
  - Anxiety [Unknown]
  - Emotional distress [Unknown]
  - Osteopenia [Not Recovered/Not Resolved]
  - Anhedonia [Unknown]

NARRATIVE: CASE EVENT DATE: 201811
